FAERS Safety Report 18329019 (Version 2)
Quarter: 2020Q4

REPORT INFORMATION
  Report Type: Spontaneous
  Country: SG (occurrence: SG)
  Receive Date: 20200930
  Receipt Date: 20201015
  Transmission Date: 20210113
  Serious: Yes (Life-Threatening, Other)
  Sender: FDA-Public Use
  Company Number: SG-SA-2020SA256722

PATIENT

DRUGS (2)
  1. DUPIXENT [Suspect]
     Active Substance: DUPILUMAB
     Indication: DERMATITIS ATOPIC
     Dosage: 300 MG, QOW
     Route: 058
     Dates: end: 202008
  2. DUPIXENT [Suspect]
     Active Substance: DUPILUMAB
     Dosage: 300 MG, Q3W
     Route: 058
     Dates: start: 202009

REACTIONS (2)
  - Off label use [Unknown]
  - Neutropenia [Recovered/Resolved]

NARRATIVE: CASE EVENT DATE: 202009
